FAERS Safety Report 5526815-4 (Version None)
Quarter: 2007Q4

REPORT INFORMATION
  Report Type: 
  Country: None (occurrence: None)
  Receive Date: 20071127
  Receipt Date: 20071119
  Transmission Date: 20080405
  Serious: Yes (Hospitalization, Other)
  Sender: FDA-Public Use
  Company Number: BR-JNJFOC-20071107370

PATIENT
  Age: 31 Year
  Sex: Male
  Weight: 100 kg

DRUGS (2)
  1. HALDOL DECANOATO [Suspect]
     Indication: MENTAL DISORDER
     Route: 030
  2. RIVOTRIL [Concomitant]
     Indication: INSOMNIA
     Route: 048

REACTIONS (5)
  - DEPRESSED LEVEL OF CONSCIOUSNESS [None]
  - HYPOREFLEXIA [None]
  - ROAD TRAFFIC ACCIDENT [None]
  - SALIVARY HYPERSECRETION [None]
  - SOMNOLENCE [None]
